FAERS Safety Report 7924482 (Version 21)
Quarter: 2013Q3

REPORT INFORMATION
  Report Type: Spontaneous
  Country: US (occurrence: US)
  Receive Date: 20110502
  Receipt Date: 20130812
  Transmission Date: 20140515
  Serious: Yes (Hospitalization, Other)
  Sender: FDA-Public Use
  Company Number: PHEH2011US00467

PATIENT
  Sex: Female

DRUGS (11)
  1. ZOMETA [Suspect]
     Dosage: 4 MG, QMO
     Dates: end: 20100101
  2. METFORMIN [Concomitant]
  3. OXYCODONE [Concomitant]
  4. CELEXA [Concomitant]
  5. VICODIN [Concomitant]
  6. PRAVASTATIN [Concomitant]
  7. OXYCONTIN [Concomitant]
  8. REVLIMID [Concomitant]
     Dosage: 5 MG, QD
     Route: 048
  9. OMEPRAZOLE [Concomitant]
     Dosage: 20 MG, QD
     Route: 048
  10. EFFEXOR [Concomitant]
  11. FLOMAX [Concomitant]

REACTIONS (127)
  - Syncope [Unknown]
  - Dizziness [Unknown]
  - Heart rate increased [Unknown]
  - Hypotension [Unknown]
  - Back pain [Unknown]
  - Loss of consciousness [Unknown]
  - Diarrhoea [Unknown]
  - Vomiting [Unknown]
  - Hypokalaemia [Unknown]
  - Osteonecrosis of jaw [Unknown]
  - Infection [Unknown]
  - Deformity [Unknown]
  - Emotional distress [Unknown]
  - Anxiety [Unknown]
  - Physical disability [Unknown]
  - Osteomyelitis [Unknown]
  - Haemorrhoids [Unknown]
  - Chronic sinusitis [Unknown]
  - Rhinitis allergic [Unknown]
  - Renal cyst [Unknown]
  - Osteoarthritis [Unknown]
  - Plasma cell myeloma [Unknown]
  - Ovarian cyst [Unknown]
  - Bartholin^s cyst [Unknown]
  - Upper limb fracture [Unknown]
  - Humerus fracture [Unknown]
  - Aspiration bone marrow [Unknown]
  - Pleural effusion [Unknown]
  - Bone lesion [Unknown]
  - Hypertension [Unknown]
  - Type 2 diabetes mellitus [Unknown]
  - Myocardial infarction [Unknown]
  - Bacteraemia [Unknown]
  - Hyperlipidaemia [Unknown]
  - Renal failure acute [Unknown]
  - Bronchitis [Unknown]
  - Upper respiratory tract infection [Unknown]
  - Hepatitis [Unknown]
  - Gastrooesophageal reflux disease [Unknown]
  - Hiatus hernia [Unknown]
  - Gastric cancer [Unknown]
  - Diverticulum [Unknown]
  - Crohn^s disease [Unknown]
  - Colitis [Unknown]
  - Spinal compression fracture [Unknown]
  - Exposed bone in jaw [Unknown]
  - Bone cancer [Unknown]
  - Intervertebral disc annular tear [Unknown]
  - Arthropathy [Unknown]
  - Hordeolum [Unknown]
  - Pathological fracture [Unknown]
  - Menorrhagia [Unknown]
  - Atelectasis [Unknown]
  - Spinal osteoarthritis [Unknown]
  - Productive cough [Unknown]
  - Gastrointestinal haemorrhage [Unknown]
  - Depression [Unknown]
  - Chorioretinal atrophy [Unknown]
  - Vitreous detachment [Unknown]
  - Retinal degeneration [Unknown]
  - Micturition urgency [Not Recovered/Not Resolved]
  - Urge incontinence [Not Recovered/Not Resolved]
  - Stress urinary incontinence [Not Recovered/Not Resolved]
  - Urinary retention [Unknown]
  - Dysuria [Unknown]
  - Bladder spasm [Unknown]
  - Joint effusion [Unknown]
  - Fracture nonunion [Unknown]
  - Fall [Unknown]
  - Intervertebral disc space narrowing [Unknown]
  - Nasal congestion [Unknown]
  - Pancytopenia [Unknown]
  - Bone pain [Unknown]
  - Costochondritis [Unknown]
  - Intervertebral disc protrusion [Unknown]
  - Breast mass [Unknown]
  - Bundle branch block right [Unknown]
  - Chest pain [Unknown]
  - Dysarthria [Unknown]
  - Coronary artery disease [Unknown]
  - Rectal haemorrhage [Unknown]
  - Carpal tunnel syndrome [Unknown]
  - Temporomandibular joint syndrome [Unknown]
  - Haematuria [Unknown]
  - Dermatitis allergic [Unknown]
  - Epistaxis [Unknown]
  - Intervertebral disc degeneration [Unknown]
  - Gastroenteritis [Unknown]
  - Osteosclerosis [Unknown]
  - Tendonitis [Unknown]
  - Polycystic ovaries [Unknown]
  - Gingival pain [Unknown]
  - Pain in jaw [Unknown]
  - Osteitis [Unknown]
  - Oropharyngeal plaque [Unknown]
  - Bone fragmentation [Unknown]
  - Oral disorder [Unknown]
  - Metastases to bone [Unknown]
  - Pigmentation disorder [Unknown]
  - Skin lesion [Unknown]
  - Neuropathy peripheral [Unknown]
  - Cellulitis [Unknown]
  - Tobacco abuse [Unknown]
  - Local swelling [Unknown]
  - Pain [Unknown]
  - Injury [Unknown]
  - Osteolysis [Unknown]
  - Melanocytic naevus [Unknown]
  - Soft tissue neoplasm [Unknown]
  - Dyspnoea [Unknown]
  - Hypoaesthesia [Unknown]
  - Eye pain [Unknown]
  - Myopia [Unknown]
  - Astigmatism [Unknown]
  - Presbyopia [Unknown]
  - Erythema [Unknown]
  - Constipation [Unknown]
  - Abdominal pain [Unknown]
  - Flank pain [Unknown]
  - Red blood cell sedimentation rate increased [Unknown]
  - Insomnia [Unknown]
  - Mucosal inflammation [Unknown]
  - Thrombocytopenia [Unknown]
  - Neutropenia [Unknown]
  - Iron deficiency anaemia [Unknown]
  - Muscular weakness [Unknown]
  - Asthenia [Unknown]
